FAERS Safety Report 4889694-4 (Version None)
Quarter: 2006Q1

REPORT INFORMATION
  Report Type: 
  Country: None (occurrence: None)
  Receive Date: 20060120
  Receipt Date: 20060120
  Transmission Date: 20060701
  Serious: Yes (Hospitalization)
  Sender: FDA-Public Use
  Company Number: None

PATIENT
  Age: 54 Year
  Sex: Female
  Weight: 80.0145 kg

DRUGS (9)
  1. DOCETAXEL 20MG/M2 [Suspect]
     Indication: LARYNGEAL CANCER
     Dosage: 37 MG
     Dates: start: 20051012, end: 20060103
  2. AMIFOSTINE [Suspect]
     Dates: start: 20051012, end: 20060103
  3. DECADRON [Concomitant]
  4. KLON-CON [Concomitant]
  5. ATIVAN [Concomitant]
  6. MANITOL [Concomitant]
  7. PHENERGAN [Concomitant]
  8. AMOXICILLIN [Concomitant]
  9. ZOFRAN [Concomitant]

REACTIONS (6)
  - CHILLS [None]
  - COUGH [None]
  - MALAISE [None]
  - PHARYNGOLARYNGEAL PAIN [None]
  - PYREXIA [None]
  - TACHYCARDIA [None]
